FAERS Safety Report 20966762 (Version 1)
Quarter: 2022Q2

REPORT INFORMATION
  Report Type: Spontaneous
  Country: DE (occurrence: DE)
  Receive Date: 20220616
  Receipt Date: 20220616
  Transmission Date: 20220720
  Serious: Yes (Other)
  Sender: FDA-Public Use
  Company Number: DE-Accord-266309

PATIENT
  Sex: Female

DRUGS (1)
  1. ANASTROZOLE [Suspect]
     Active Substance: ANASTROZOLE
     Indication: Breast cancer metastatic
     Dosage: STRENGTH: 1 MG
     Route: 048

REACTIONS (4)
  - Polyneuropathy [Unknown]
  - Condition aggravated [Unknown]
  - Visual impairment [Unknown]
  - Product substitution issue [Unknown]
